FAERS Safety Report 7272650-9 (Version None)
Quarter: 2011Q1

REPORT INFORMATION
  Report Type: 
  Country: None (occurrence: None)
  Receive Date: 20110203
  Receipt Date: 20110127
  Transmission Date: 20110831
  Serious: Yes (Hospitalization, Other)
  Sender: FDA-Public Use
  Company Number: US-BRISTOL-MYERS SQUIBB COMPANY-15480239

PATIENT
  Age: 84 Year
  Sex: Female

DRUGS (1)
  1. COUMADIN [Suspect]
     Indication: ATRIAL FIBRILLATION
     Route: 048
     Dates: start: 20100312

REACTIONS (4)
  - MOVEMENT DISORDER [None]
  - ASTHENIA [None]
  - COLON CANCER [None]
  - GASTROINTESTINAL HAEMORRHAGE [None]
